FAERS Safety Report 11757089 (Version 3)
Quarter: 2016Q1

REPORT INFORMATION
  Report Type: Spontaneous
  Country: US (occurrence: US)
  Receive Date: 20151120
  Receipt Date: 20160120
  Transmission Date: 20160525
  Serious: Yes (Hospitalization)
  Sender: FDA-Public Use
  Company Number: US-AMGEN-USASP2015121000

PATIENT
  Age: 63 Year
  Sex: Female
  Weight: 73.46 kg

DRUGS (5)
  1. LEVAQUIN [Suspect]
     Active Substance: LEVOFLOXACIN
     Indication: LUNG INFECTION
     Dosage: UNK UNK, ONCE DAILY
     Route: 065
     Dates: start: 2000
  2. PROCRIT [Suspect]
     Active Substance: ERYTHROPOIETIN
     Indication: NEPHROGENIC ANAEMIA
     Dosage: 10000 UNIT, UNK
     Route: 030
     Dates: start: 2012
  3. IBUPROFEN. [Suspect]
     Active Substance: IBUPROFEN
     Indication: PRODUCT USED FOR UNKNOWN INDICATION
     Dosage: UNK
     Route: 065
  4. ADRENALINE                         /00003901/ [Concomitant]
     Active Substance: EPINEPHRINE
     Dosage: UNK
     Dates: start: 2013
  5. PROCRIT [Suspect]
     Active Substance: ERYTHROPOIETIN
     Dosage: 20000 UNIT, UNK
     Route: 030
     Dates: start: 2012

REACTIONS (14)
  - Oxygen saturation decreased [Not Recovered/Not Resolved]
  - Blood count abnormal [Unknown]
  - Fatigue [Unknown]
  - Feeling abnormal [Not Recovered/Not Resolved]
  - Anxiety [Unknown]
  - Unevaluable event [Unknown]
  - Haemoglobin abnormal [Unknown]
  - Pain [Unknown]
  - Speech disorder [Not Recovered/Not Resolved]
  - Serum ferritin decreased [Unknown]
  - Blood iron abnormal [Not Recovered/Not Resolved]
  - Ulcer haemorrhage [Recovered/Resolved]
  - Thinking abnormal [Not Recovered/Not Resolved]
  - Emotional distress [Unknown]

NARRATIVE: CASE EVENT DATE: 2013
